FAERS Safety Report 4333140-6 (Version None)
Quarter: 2004Q1

REPORT INFORMATION
  Report Type: 
  Country: None (occurrence: None)
  Receive Date: 20040330
  Receipt Date: 20040311
  Transmission Date: 20041129
  Serious: Yes (Hospitalization)
  Sender: FDA-Public Use
  Company Number: 800477

PATIENT
  Age: 26 Year
  Sex: Male
  Weight: 90.9 kg

DRUGS (6)
  1. KEPPRA [Suspect]
     Indication: CONVULSION
     Dosage: 500 MG 2/D PO
     Route: 048
     Dates: start: 20010426, end: 20031101
  2. KEPPRA [Suspect]
     Indication: CONVULSION
     Dosage: 250 MG 2/D PO
     Route: 048
     Dates: start: 20031101, end: 20040113
  3. TEGRETOL-XR [Suspect]
     Indication: CONVULSION
     Dosage: 400 MG 2/D PO
     Route: 048
     Dates: start: 20010401, end: 20031101
  4. TEGRETOL-XR [Suspect]
     Indication: CONVULSION
     Dosage: 500 MG 2/D PO
     Route: 048
     Dates: start: 20031101
  5. ALBUTEROL [Concomitant]
  6. DEPAKOTE [Concomitant]

REACTIONS (8)
  - ABDOMINAL DISCOMFORT [None]
  - ASTHMA [None]
  - CHEST PAIN [None]
  - CONFUSIONAL STATE [None]
  - HEADACHE [None]
  - PANIC REACTION [None]
  - PNEUMONIA [None]
  - UPPER RESPIRATORY TRACT INFECTION [None]
